FAERS Safety Report 7094367-6 (Version None)
Quarter: 2010Q4

REPORT INFORMATION
  Report Type: 
  Country: None (occurrence: None)
  Receive Date: 20101110
  Receipt Date: 20101101
  Transmission Date: 20110411
  Serious: Yes (Other)
  Sender: FDA-Public Use
  Company Number: IE-PFIZER INC-2010138731

PATIENT
  Age: 65 Year
  Sex: Male

DRUGS (1)
  1. CAVERJECT [Suspect]
     Dosage: 40 UG, UNK

REACTIONS (3)
  - DEVICE MALFUNCTION [None]
  - INJURY ASSOCIATED WITH DEVICE [None]
  - SKIN DISCOLOURATION [None]
